FAERS Safety Report 13284540 (Version 1)
Quarter: 2017Q1

REPORT INFORMATION
  Report Type: Report from Study
  Country: FR (occurrence: FR)
  Receive Date: 20170301
  Receipt Date: 20170301
  Transmission Date: 20170428
  Serious: Yes (Death)
  Sender: FDA-Public Use
  Company Number: FR-IPCA LABORATORIES LIMITED-IPC201702-000044

PATIENT
  Age: 6 Year
  Sex: Male

DRUGS (8)
  1. KETOTIFEN [Suspect]
     Active Substance: KETOTIFEN
  2. HYOSCINE [Suspect]
     Active Substance: SCOPOLAMINE
  3. BOTOX [Suspect]
     Active Substance: ONABOTULINUMTOXINA
     Indication: CEREBRAL PALSY
  4. CETIRIZINE [Suspect]
     Active Substance: CETIRIZINE HYDROCHLORIDE
  5. BECLOMETHASONE [Suspect]
     Active Substance: BECLOMETHASONE
  6. IPRATROPIUM [Suspect]
     Active Substance: IPRATROPIUM
  7. MELATONINE [Suspect]
     Active Substance: MELATONIN
  8. BACLOFEN. [Suspect]
     Active Substance: BACLOFEN

REACTIONS (1)
  - Death [Fatal]
